FAERS Safety Report 16563229 (Version 1)
Quarter: 2019Q3

REPORT INFORMATION
  Report Type: Spontaneous
  Country: CA (occurrence: CA)
  Receive Date: 20190711
  Receipt Date: 20190711
  Transmission Date: 20191004
  Serious: Yes (Other)
  Sender: FDA-Public Use
  Company Number: CA-SAMSUNG BIOEPIS-SB-2019-17834

PATIENT
  Age: 69 Year
  Sex: Male
  Weight: 58 kg

DRUGS (2)
  1. INFLIXIMAB [Suspect]
     Active Substance: INFLIXIMAB
     Indication: CROHN^S DISEASE
     Route: 042
  2. PARA-AMINOSALICYLIC ACID [Concomitant]
     Active Substance: AMINOSALICYLIC ACID
     Indication: PRODUCT USED FOR UNKNOWN INDICATION
     Dosage: UNKNOWN
     Route: 054

REACTIONS (12)
  - Fatigue [Recovering/Resolving]
  - Dizziness [Recovering/Resolving]
  - Vein rupture [Recovering/Resolving]
  - Weight increased [Recovering/Resolving]
  - Hypotension [Recovering/Resolving]
  - Heart rate decreased [Recovering/Resolving]
  - Hyperaesthesia [Recovering/Resolving]
  - Product use issue [Recovering/Resolving]
  - Anal incontinence [Recovering/Resolving]
  - Asthenia [Recovering/Resolving]
  - Dermoid cyst [Recovering/Resolving]
  - Nausea [Recovering/Resolving]
